FAERS Safety Report 8603452-6 (Version None)
Quarter: 2012Q3

REPORT INFORMATION
  Report Type: 
  Country: None (occurrence: None)
  Receive Date: 20120817
  Receipt Date: 20120808
  Transmission Date: 20120928
  Serious: Yes (Hospitalization)
  Sender: FDA-Public Use
  Company Number: RU-ABBOTT-12P-251-0967515-00

PATIENT
  Sex: Female

DRUGS (14)
  1. NIKAVIR [Suspect]
     Indication: HIV INFECTION
  2. VALCIT [Concomitant]
     Indication: CYTOMEGALOVIRUS INFECTION
  3. ELEVIT [Concomitant]
     Indication: VITAMIN SUPPLEMENTATION
  4. EPIVIR [Suspect]
     Indication: PRODUCT USED FOR UNKNOWN INDICATION
  5. FOLIC ACID [Concomitant]
     Indication: VITAMIN SUPPLEMENTATION
  6. KIPFERON [Concomitant]
     Indication: PRODUCT USED FOR UNKNOWN INDICATION
  7. KALETRA [Suspect]
     Indication: HIV INFECTION
     Dates: start: 20120217
  8. ERYTHROMYCIN [Concomitant]
     Indication: URINARY TRACT INFECTION
  9. COMBIVIR [Concomitant]
     Indication: HIV INFECTION
  10. WOBENZYM [Concomitant]
     Indication: PRODUCT USED FOR UNKNOWN INDICATION
     Dosage: 3 DRAGEE TID FOR 7 DAYS
  11. HEXICON SUPPOSITORIES [Concomitant]
     Indication: PRODUCT USED FOR UNKNOWN INDICATION
     Dosage: 1 SUPP BID DURING 10 DAYS
  12. TRICHOPOL [Concomitant]
     Indication: PRODUCT USED FOR UNKNOWN INDICATION
     Dosage: 1 TAB BID DURING 1 WEEK
  13. KALETRA [Suspect]
  14. ACYCLOVIR [Concomitant]
     Indication: PRODUCT USED FOR UNKNOWN INDICATION

REACTIONS (5)
  - ANAEMIA [None]
  - PLACENTAL DISORDER [None]
  - PRE-ECLAMPSIA [None]
  - ENTEROCOLITIS [None]
  - UMBILICAL CORD ABNORMALITY [None]
